FAERS Safety Report 7671420-7 (Version None)
Quarter: 2011Q3

REPORT INFORMATION
  Report Type: 
  Country: None (occurrence: None)
  Receive Date: 20110809
  Receipt Date: 20110729
  Transmission Date: 20111222
  Serious: Yes (Hospitalization, Disabling)
  Sender: FDA-Public Use
  Company Number: DE-NOVOPROD-323871

PATIENT

DRUGS (4)
  1. LEVOTHYROXINE SODIUM [Concomitant]
     Indication: PRODUCT USED FOR UNKNOWN INDICATION
     Dosage: 100 UG, QD
     Route: 048
     Dates: start: 20110208
  2. NOVOSEVEN [Suspect]
     Indication: HAEMORRHAGE
     Route: 042
     Dates: start: 20110203
  3. NOVOSEVEN [Suspect]
     Route: 042
     Dates: start: 20110203
  4. NOVOSEVEN [Suspect]
     Route: 042
     Dates: start: 20110203

REACTIONS (2)
  - THROMBOSIS [None]
  - CEREBRAL INFARCTION [None]
